FAERS Safety Report 19608894 (Version 1)
Quarter: 2021Q3

REPORT INFORMATION
  Report Type: Other
  Country: CN (occurrence: CN)
  Receive Date: 20210726
  Receipt Date: 20210726
  Transmission Date: 20211014
  Serious: Yes (Death, Other)
  Sender: FDA-Public Use
  Company Number: CN-ROCHE-2874570

PATIENT

DRUGS (11)
  1. METHOTREXATE. [Suspect]
     Active Substance: METHOTREXATE
     Indication: PROPHYLAXIS AGAINST GRAFT VERSUS HOST DISEASE
     Dosage: 15 MG/M2 ON DAY +1 AND 10 MG/M2 ON DAYS +3, +6, AND +11
     Route: 042
  2. FLUDARABINE [Suspect]
     Active Substance: FLUDARABINE PHOSPHATE
     Route: 065
  3. BUSULFAN. [Suspect]
     Active Substance: BUSULFAN
     Indication: PROPHYLAXIS AGAINST TRANSPLANT REJECTION
     Dosage: ON DAYS ?7 AND ?6
     Route: 065
  4. RITUXIMAB. [Suspect]
     Active Substance: RITUXIMAB
     Indication: EPSTEIN-BARR VIRUS INFECTION
     Route: 065
  5. FLUDARABINE [Suspect]
     Active Substance: FLUDARABINE PHOSPHATE
     Indication: PROPHYLAXIS AGAINST TRANSPLANT REJECTION
     Dosage: ON DAYS ?10, ?9, ?8, AND ?7
     Route: 042
  6. ANTITHYMOCYTE IMMUNOGLOBULIN (RABBIT) [Suspect]
     Active Substance: LAPINE T-LYMPHOCYTE IMMUNE GLOBULIN
     Indication: PROPHYLAXIS AGAINST TRANSPLANT REJECTION
     Dosage: ON DAYS ?5, ?4, ?3, AND ?2
     Route: 065
  7. TACROLIMUS. [Suspect]
     Active Substance: TACROLIMUS
     Route: 048
  8. CYCLOPHOSPHAMIDE. [Suspect]
     Active Substance: CYCLOPHOSPHAMIDE
     Indication: PROPHYLAXIS AGAINST TRANSPLANT REJECTION
     Dosage: ON DAYS ?6, ?5, ?4, AND ?3
     Route: 065
  9. METHYLPREDNISOLONE. [Suspect]
     Active Substance: METHYLPREDNISOLONE
     Indication: ACUTE GRAFT VERSUS HOST DISEASE
     Dosage: 1?2 MG/KG/DAY
     Route: 065
  10. MYCOPHENOLATE MOFETIL. [Suspect]
     Active Substance: MYCOPHENOLATE MOFETIL
     Indication: PROPHYLAXIS AGAINST GRAFT VERSUS HOST DISEASE
     Dosage: ON DAY ?9
     Route: 048
  11. TACROLIMUS. [Suspect]
     Active Substance: TACROLIMUS
     Indication: PROPHYLAXIS AGAINST GRAFT VERSUS HOST DISEASE
     Route: 042

REACTIONS (15)
  - Cystitis haemorrhagic [Unknown]
  - BK virus infection [Unknown]
  - Septic shock [Fatal]
  - Febrile neutropenia [Unknown]
  - Post transplant lymphoproliferative disorder [Unknown]
  - Escherichia infection [Unknown]
  - Epstein-Barr virus infection reactivation [Unknown]
  - Rectal abscess [Unknown]
  - Pneumonia fungal [Fatal]
  - Stenotrophomonas infection [Fatal]
  - Klebsiella infection [Unknown]
  - Cytomegalovirus infection reactivation [Unknown]
  - Infection [Fatal]
  - Soft tissue infection [Unknown]
  - Skin infection [Unknown]
